FAERS Safety Report 10163686 (Version 1)
Quarter: 2014Q2

REPORT INFORMATION
  Report Type: Spontaneous
  Country: US (occurrence: US)
  Receive Date: 20140509
  Receipt Date: 20140509
  Transmission Date: 20141212
  Serious: Yes (Other)
  Sender: FDA-Public Use
  Company Number: US-B.I. PHARMACEUTICALS,INC./RIDGEFIELD-2014-BI-20412BP

PATIENT
  Age: 61 Year
  Sex: Male
  Weight: 119 kg

DRUGS (18)
  1. SPIRIVA [Suspect]
     Indication: CHRONIC OBSTRUCTIVE PULMONARY DISEASE
     Dosage: 18 MG
     Route: 055
     Dates: start: 201201
  2. SPIRIVA [Suspect]
     Dosage: 18 MCG
     Route: 048
     Dates: start: 20140423, end: 20140423
  3. AMIODARONE [Concomitant]
     Indication: CORONARY ARTERY DISEASE
     Dosage: 100 MG
     Route: 048
  4. ASPIRIN [Concomitant]
     Dosage: 81 MG
     Route: 048
  5. BUPROPION [Concomitant]
     Indication: DEPRESSION
     Dosage: 300 MG
     Route: 048
  6. CAPTOPRIL [Concomitant]
     Indication: HYPERTENSION
     Dosage: 100 MG
     Route: 048
  7. FLUTICASONE NASAL SPRAY [Concomitant]
     Indication: SEASONAL ALLERGY
     Dosage: FORMULATION: NASAL SPRAY
     Route: 045
  8. ISOSORBIDE MONONITRATE [Concomitant]
     Indication: CHEST PAIN
     Dosage: 30 MG
     Route: 048
  9. NITROGLYCERIN [Concomitant]
     Indication: CHEST PAIN
     Route: 050
  10. MAGNESIUM OXIDE [Concomitant]
     Dosage: 400 MG
     Route: 048
  11. METOPROLOL [Concomitant]
     Indication: HYPERTENSION
     Dosage: 200 MG
     Route: 048
  12. MULTIVITAMIN [Concomitant]
     Route: 048
  13. POTASSIUM CHLORIDE [Concomitant]
     Dosage: 40 MEQ
     Route: 048
  14. PRAVASTATIN [Concomitant]
     Indication: BLOOD CHOLESTEROL INCREASED
     Dosage: 40 MG
     Route: 048
  15. RESTORIL [Concomitant]
     Indication: SLEEP DISORDER
     Route: 048
  16. WARFARIN [Concomitant]
     Indication: LEFT VENTRICULAR DYSFUNCTION
     Dosage: STRENGTH AND DAILY DOSE: 7.5MG EVERY MONDAY,WEDNESDAY AND FRIDAY. 5MG EVERY TUES,THURS,SAT AND SUNDA
     Route: 048
  17. XANAX [Concomitant]
     Indication: ANXIETY
     Route: 048
  18. ZOLOFT [Concomitant]
     Indication: DEPRESSION
     Dosage: 200 MG
     Route: 048

REACTIONS (5)
  - Prostate cancer [Not Recovered/Not Resolved]
  - Prostatomegaly [Not Recovered/Not Resolved]
  - Weight increased [Not Recovered/Not Resolved]
  - Dysuria [Not Recovered/Not Resolved]
  - Incorrect route of drug administration [Recovered/Resolved]
